FAERS Safety Report 5577106-7 (Version None)
Quarter: 2007Q4

REPORT INFORMATION
  Report Type: 
  Country: None (occurrence: None)
  Receive Date: 20071228
  Receipt Date: 20071218
  Transmission Date: 20080405
  Serious: Yes (Other)
  Sender: FDA-Public Use
  Company Number: US-PFIZER INC-2007043436

PATIENT
  Sex: Male
  Weight: 80.7 kg

DRUGS (2)
  1. VIAGRA [Suspect]
  2. NEXIUM [Concomitant]
     Indication: GASTROOESOPHAGEAL REFLUX DISEASE

REACTIONS (5)
  - BLINDNESS [None]
  - CHORIORETINOPATHY [None]
  - MACULOPATHY [None]
  - OPTIC ISCHAEMIC NEUROPATHY [None]
  - RETINAL TEAR [None]
